FAERS Safety Report 6608089-6 (Version None)
Quarter: 2010Q1

REPORT INFORMATION
  Report Type: 
  Country: None (occurrence: None)
  Receive Date: 20100301
  Receipt Date: 20100222
  Transmission Date: 20100710
  Serious: Yes (Death)
  Sender: FDA-Public Use
  Company Number: CHPA2010US03826

PATIENT
  Age: 47 Year
  Sex: Female

DRUGS (1)
  1. ACETYLSALICYLIC ACID SRT [Suspect]
     Route: 048

REACTIONS (20)
  - BRAIN HERNIATION [None]
  - BRAIN OEDEMA [None]
  - CEREBROVASCULAR OPERATION [None]
  - COMPUTERISED TOMOGRAM [None]
  - CSF PRESSURE [None]
  - ENDOTRACHEAL INTUBATION [None]
  - EXTRADURAL HAEMATOMA [None]
  - GAIT DISTURBANCE [None]
  - HAEMODIALYSIS [None]
  - HEADACHE [None]
  - HYPOXIC ENCEPHALOPATHY [None]
  - INTENTIONAL OVERDOSE [None]
  - INTRACRANIAL PRESSURE INCREASED [None]
  - LETHARGY [None]
  - MECHANICAL VENTILATION [None]
  - MEDICATION ERROR [None]
  - MYOCARDIAL INFARCTION [None]
  - THERAPEUTIC AGENT TOXICITY [None]
  - THERAPEUTIC HYPOTHERMIA [None]
  - VISION BLURRED [None]
